FAERS Safety Report 15183477 (Version 1)
Quarter: 2018Q3

REPORT INFORMATION
  Report Type: Spontaneous
  Country: US (occurrence: US)
  Receive Date: 20180723
  Receipt Date: 20180723
  Transmission Date: 20181010
  Serious: Yes (Death)
  Sender: FDA-Public Use
  Company Number: US-CELGENEUS-USA-20180706535

PATIENT
  Age: 63 Year
  Sex: Male

DRUGS (2)
  1. ABRAXANE [Suspect]
     Active Substance: PACLITAXEL
     Dosage: 270 MILLIGRAM
     Route: 065
     Dates: start: 201804
  2. ABRAXANE [Suspect]
     Active Substance: PACLITAXEL
     Indication: PANCREATIC CARCINOMA
     Dosage: 270 MILLIGRAM
     Route: 065
     Dates: start: 20180213

REACTIONS (1)
  - Death [Fatal]

NARRATIVE: CASE EVENT DATE: 20180601
